FAERS Safety Report 5289131-4 (Version None)
Quarter: 2007Q1

REPORT INFORMATION
  Report Type: 
  Country: None (occurrence: None)
  Receive Date: 20070124
  Receipt Date: 20060911
  Transmission Date: 20070707
  Serious: Yes (Other)
  Sender: FDA-Public Use
  Company Number: US200609002588

PATIENT
  Age: 78 Year
  Sex: Female

DRUGS (4)
  1. FORTEO [Suspect]
     Indication: BONE DENSITY DECREASED
     Dates: start: 20060516, end: 20060902
  2. FORTEO [Suspect]
     Indication: BONE DENSITY DECREASED
     Dates: start: 20060911
  3. FORTEO [Concomitant]
  4. NEXIUM [Concomitant]

REACTIONS (1)
  - DYSPEPSIA [None]
